FAERS Safety Report 25682106 (Version 1)
Quarter: 2025Q3

REPORT INFORMATION
  Report Type: Spontaneous
  Country: US (occurrence: None)
  Receive Date: 20250812
  Receipt Date: 20250812
  Transmission Date: 20251021
  Serious: Yes (Death)
  Sender: FDA-CTU
  Company Number: None

PATIENT
  Age: 86 Year
  Sex: Female
  Weight: 81.7 kg

DRUGS (15)
  1. TAGRISSO [Suspect]
     Active Substance: OSIMERTINIB
     Indication: Lung neoplasm malignant
     Dosage: 80 MG DAILY ORAL
     Route: 048
     Dates: start: 20240708, end: 20250805
  2. ASPIRIN [Concomitant]
     Active Substance: ASPIRIN
  3. cardizem cd 180mg [Concomitant]
  4. FLUTICASONE [Concomitant]
     Active Substance: FLUTICASONE
  5. IBUPROFEN [Concomitant]
     Active Substance: IBUPROFEN
  6. METFORMIN HYDROCHLORIDE [Concomitant]
     Active Substance: METFORMIN HYDROCHLORIDE
  7. PANTOPRAZOLE SODIUM [Concomitant]
     Active Substance: PANTOPRAZOLE SODIUM
  8. RAMIPRIL [Concomitant]
     Active Substance: RAMIPRIL
  9. SIMVASTATIN [Concomitant]
     Active Substance: SIMVASTATIN
  10. SYNTHROID [Concomitant]
     Active Substance: LEVOTHYROXINE SODIUM
  11. TORSEMIDE [Concomitant]
     Active Substance: TORSEMIDE
  12. Trulicity 1.5mg/0/5ml [Concomitant]
  13. Multivtamin for women [Concomitant]
  14. vitamin d 1000u [Concomitant]
  15. EXCEDRIN EXTRA STRENGTH [Concomitant]
     Active Substance: ACETAMINOPHEN\ASPIRIN\CAFFEINE

REACTIONS (2)
  - Disease progression [None]
  - Lung neoplasm malignant [None]

NARRATIVE: CASE EVENT DATE: 20250805
